FAERS Safety Report 13988104 (Version 2)
Quarter: 2018Q1

REPORT INFORMATION
  Report Type: Spontaneous
  Country: US (occurrence: US)
  Receive Date: 20170919
  Receipt Date: 20180110
  Transmission Date: 20180508
  Serious: No
  Sender: FDA-Public Use
  Company Number: US-PFIZER INC-2017403620

PATIENT
  Age: 64 Year
  Sex: Female

DRUGS (16)
  1. AMBIEN [Concomitant]
     Active Substance: ZOLPIDEM TARTRATE
     Dosage: UNK
     Dates: start: 20170814, end: 20170927
  2. XANAX [Suspect]
     Active Substance: ALPRAZOLAM
     Indication: TREMOR
  3. XANAX [Suspect]
     Active Substance: ALPRAZOLAM
     Indication: SKIN BURNING SENSATION
  4. EFFEXOR [Concomitant]
     Active Substance: VENLAFAXINE HYDROCHLORIDE
     Dosage: UNK
     Dates: start: 20170828, end: 20170831
  5. CLONIDINE. [Concomitant]
     Active Substance: CLONIDINE
     Dosage: UNK
     Dates: start: 20170814, end: 20170818
  6. XANAX [Suspect]
     Active Substance: ALPRAZOLAM
     Indication: NAUSEA
     Dosage: UNK, AS NEEDED (0.025 AS NEEDED-THEN .025 5X A DAY; 0.050 4 X DAY)
     Dates: start: 20160514
  7. LYRICA [Concomitant]
     Active Substance: PREGABALIN
     Dosage: UNK
     Dates: start: 20170710, end: 20170728
  8. LEXAPRO [Concomitant]
     Active Substance: ESCITALOPRAM OXALATE
     Dosage: UNK
     Dates: start: 20170529, end: 20170530
  9. SEROQUEL [Concomitant]
     Active Substance: QUETIAPINE FUMARATE
     Dosage: UNK
     Dates: start: 20170820, end: 20170822
  10. XANAX [Suspect]
     Active Substance: ALPRAZOLAM
     Indication: FEELING JITTERY
  11. XANAX [Suspect]
     Active Substance: ALPRAZOLAM
     Indication: ANXIETY
  12. ZOFRAN [Suspect]
     Active Substance: ONDANSETRON HYDROCHLORIDE
     Indication: FEELING JITTERY
     Dosage: UNK
  13. ZOFRAN [Suspect]
     Active Substance: ONDANSETRON HYDROCHLORIDE
     Indication: SKIN BURNING SENSATION
  14. ZOFRAN [Suspect]
     Active Substance: ONDANSETRON HYDROCHLORIDE
     Indication: TREMOR
  15. ZOFRAN [Suspect]
     Active Substance: ONDANSETRON HYDROCHLORIDE
     Indication: NAUSEA
  16. CYMBALTA [Concomitant]
     Active Substance: DULOXETINE HYDROCHLORIDE
     Dosage: UNK
     Dates: start: 20170711, end: 20170713

REACTIONS (1)
  - No adverse event [Not Recovered/Not Resolved]

NARRATIVE: CASE EVENT DATE: 20160514
